FAERS Safety Report 8782664 (Version 8)
Quarter: 2013Q2

REPORT INFORMATION
  Report Type: Spontaneous
  Country: US (occurrence: US)
  Receive Date: 20120913
  Receipt Date: 20130416
  Transmission Date: 20140414
  Serious: Yes (Hospitalization, Other)
  Sender: FDA-Public Use
  Company Number: US-009507513-1201USA03703

PATIENT
  Sex: Female
  Weight: 68.27 kg

DRUGS (4)
  1. FOSAMAX [Suspect]
     Indication: PROPHYLAXIS
     Dosage: 70 MG, QW
     Route: 048
     Dates: start: 2002, end: 200807
  2. GABAPENTIN [Concomitant]
     Indication: MUSCLE SPASMS
     Dosage: UNK
     Dates: start: 1980
  3. OMEPRAZOLE [Concomitant]
     Indication: GASTROOESOPHAGEAL REFLUX DISEASE
     Dosage: UNK
     Dates: start: 1985
  4. XANAX [Concomitant]
     Indication: ANXIETY
     Dosage: UNK
     Dates: start: 2000

REACTIONS (31)
  - Femur fracture [Unknown]
  - Hip fracture [Unknown]
  - Open reduction of fracture [Unknown]
  - Intramedullary rod insertion [Unknown]
  - Joint surgery [Unknown]
  - Medical device pain [Recovered/Resolved]
  - Medical device removal [Recovering/Resolving]
  - Anaemia [Recovered/Resolved]
  - Femur fracture [Unknown]
  - Femur fracture [Unknown]
  - Bone disorder [Unknown]
  - Depression [Unknown]
  - Ulna fracture [Recovered/Resolved]
  - Oedema [Unknown]
  - Hypercholesterolaemia [Unknown]
  - Blood triglycerides increased [Unknown]
  - Osteoporosis [Unknown]
  - Anxiety [Unknown]
  - Fracture nonunion [Unknown]
  - Fall [Unknown]
  - Osteoarthritis [Unknown]
  - Scoliosis [Unknown]
  - Back injury [Unknown]
  - Intervertebral disc degeneration [Unknown]
  - Spinal osteoarthritis [Unknown]
  - Medical device pain [Unknown]
  - Medical device removal [Unknown]
  - Nerve injury [Unknown]
  - Fall [Unknown]
  - Radius fracture [Unknown]
  - Rib fracture [Recovered/Resolved]
